FAERS Safety Report 5082377-X (Version None)
Quarter: 2006Q3

REPORT INFORMATION
  Report Type: 
  Country: None (occurrence: None)
  Receive Date: 20060814
  Receipt Date: 20060802
  Transmission Date: 20061208
  Serious: Yes (Other)
  Sender: FDA-Public Use
  Company Number: 2006096104

PATIENT
  Sex: Female

DRUGS (8)
  1. LYRICA [Suspect]
     Indication: DRUG USE FOR UNKNOWN INDICATION
     Dates: start: 20060701
  2. INSULIN [Concomitant]
  3. SYNTHROID [Concomitant]
  4. PREDNISONE [Concomitant]
  5. HYDROCODONE BITARTRATE [Concomitant]
  6. METHADONE HCL [Concomitant]
  7. PAXIL [Concomitant]
  8. CLONAZEPAM [Concomitant]

REACTIONS (4)
  - CONFUSIONAL STATE [None]
  - DIABETES MELLITUS [None]
  - SOMNOLENCE [None]
  - SYSTEMIC LUPUS ERYTHEMATOSUS [None]
